FAERS Safety Report 7759050-X (Version None)
Quarter: 2011Q3

REPORT INFORMATION
  Report Type: 
  Country: None (occurrence: None)
  Receive Date: 20110916
  Receipt Date: 20110916
  Transmission Date: 20111222
  Serious: No
  Sender: FDA-Public Use
  Company Number: None

PATIENT
  Sex: Male
  Weight: 75.2971 kg

DRUGS (1)
  1. EFFEXOR XR [Suspect]
     Dosage: 75MG. XR 1 QD BY MOUTH
     Route: 048

REACTIONS (4)
  - RASH [None]
  - PRODUCT SUBSTITUTION ISSUE [None]
  - ANXIETY [None]
  - NO THERAPEUTIC RESPONSE [None]
